FAERS Safety Report 12550417 (Version 2)
Quarter: 2018Q3

REPORT INFORMATION
  Report Type: Spontaneous
  Country: SE (occurrence: SE)
  Receive Date: 20160712
  Receipt Date: 20180813
  Transmission Date: 20181010
  Serious: Yes (Disabling)
  Sender: FDA-Public Use
  Company Number: SE-GILEAD-2016-0222776

PATIENT
  Age: 72 Year
  Sex: Male

DRUGS (27)
  1. IMDUR [Concomitant]
     Active Substance: ISOSORBIDE MONONITRATE
  2. SELOKENZOC [Concomitant]
     Active Substance: METOPROLOL SUCCINATE
     Indication: PRODUCT USED FOR UNKNOWN INDICATION
     Route: 065
  3. SELOKENZOC [Concomitant]
     Active Substance: METOPROLOL SUCCINATE
  4. ATORBIR [Concomitant]
     Active Substance: ATORVASTATIN
  5. ATORBIR [Concomitant]
     Active Substance: ATORVASTATIN
  6. IMOVANE [Concomitant]
     Active Substance: ZOPICLONE
  7. KALCIPOS?D [Concomitant]
     Active Substance: CALCIUM CARBONATE\CHOLECALCIFEROL
     Indication: PRODUCT USED FOR UNKNOWN INDICATION
  8. SELOKENZOC [Concomitant]
     Active Substance: METOPROLOL SUCCINATE
  9. TROMBYL [Concomitant]
     Active Substance: ASPIRIN
  10. ALENDRONIC ACID [Concomitant]
     Active Substance: ALENDRONIC ACID
  11. ALENDRONIC ACID [Concomitant]
     Active Substance: ALENDRONIC ACID
  12. IMDUR [Concomitant]
     Active Substance: ISOSORBIDE MONONITRATE
  13. IMOVANE [Concomitant]
     Active Substance: ZOPICLONE
  14. SOVALDI [Suspect]
     Active Substance: SOFOSBUVIR
     Indication: HEPATITIS C
     Route: 048
     Dates: start: 20160505, end: 20160630
  15. ATORBIR [Concomitant]
     Active Substance: ATORVASTATIN
     Indication: PRODUCT USED FOR UNKNOWN INDICATION
     Route: 065
  16. LEVAXIN [Concomitant]
     Active Substance: LEVOTHYROXINE SODIUM
     Indication: PRODUCT USED FOR UNKNOWN INDICATION
     Route: 065
  17. TROMBYL [Concomitant]
     Active Substance: ASPIRIN
     Indication: PRODUCT USED FOR UNKNOWN INDICATION
     Route: 065
  18. BETOLVIDON [Concomitant]
     Active Substance: CYANOCOBALAMIN
  19. BETOLVIDON [Concomitant]
     Active Substance: CYANOCOBALAMIN
  20. IMOVANE [Concomitant]
     Active Substance: ZOPICLONE
     Indication: PRODUCT USED FOR UNKNOWN INDICATION
     Route: 065
  21. TROMBYL [Concomitant]
     Active Substance: ASPIRIN
  22. DAKLINZA [Suspect]
     Active Substance: DACLATASVIR
     Indication: HEPATITIS C
     Route: 048
     Dates: start: 20160505, end: 20160630
  23. LEVAXIN [Concomitant]
     Active Substance: LEVOTHYROXINE SODIUM
  24. ALENDRONIC ACID [Concomitant]
     Active Substance: ALENDRONIC ACID
     Indication: PRODUCT USED FOR UNKNOWN INDICATION
     Route: 065
  25. BETOLVIDON [Concomitant]
     Active Substance: CYANOCOBALAMIN
     Indication: PRODUCT USED FOR UNKNOWN INDICATION
     Route: 065
  26. IMDUR [Concomitant]
     Active Substance: ISOSORBIDE MONONITRATE
     Indication: PRODUCT USED FOR UNKNOWN INDICATION
     Route: 065
  27. LEVAXIN [Concomitant]
     Active Substance: LEVOTHYROXINE SODIUM

REACTIONS (2)
  - Visual impairment [Not Recovered/Not Resolved]
  - Colour blindness [Not Recovered/Not Resolved]

NARRATIVE: CASE EVENT DATE: 201606
